FAERS Safety Report 6786488-X (Version None)
Quarter: 2010Q2

REPORT INFORMATION
  Report Type: 
  Country: None (occurrence: None)
  Receive Date: 20100623
  Receipt Date: 20100616
  Transmission Date: 20101027
  Serious: Yes (Death)
  Sender: FDA-Public Use
  Company Number: B0653299A

PATIENT
  Age: 58 Year
  Sex: Female

DRUGS (3)
  1. ALKERAN [Suspect]
     Indication: STEM CELL TRANSPLANT
     Dosage: 100MG PER DAY
     Route: 042
     Dates: start: 20050315, end: 20050316
  2. GRAN [Concomitant]
     Dosage: 300MCG PER DAY
     Dates: start: 20050319, end: 20050329
  3. MEROPEN [Concomitant]
     Indication: FEBRILE NEUTROPENIA
     Dosage: 2G PER DAY
     Route: 042
     Dates: start: 20050323, end: 20050406

REACTIONS (2)
  - BRONCHOPULMONARY ASPERGILLOSIS [None]
  - CYTOMEGALOVIRUS INFECTION [None]
